FAERS Safety Report 16107682 (Version 4)
Quarter: 2019Q2

REPORT INFORMATION
  Report Type: Spontaneous
  Country: JP (occurrence: JP)
  Receive Date: 20190322
  Receipt Date: 20190416
  Transmission Date: 20190711
  Serious: Yes (Other)
  Sender: FDA-Public Use
  Company Number: JP-PFIZER INC-2019123402

PATIENT
  Age: 81 Year
  Sex: Female

DRUGS (1)
  1. AMIODARONE HYDROCHLORIDE. [Suspect]
     Active Substance: AMIODARONE HYDROCHLORIDE
     Indication: ATRIAL FIBRILLATION
     Dosage: UNK
     Route: 048

REACTIONS (9)
  - Tri-iodothyronine free decreased [Recovering/Resolving]
  - Anti-thyroid antibody positive [Recovering/Resolving]
  - Gait disturbance [Recovering/Resolving]
  - Blood thyroid stimulating hormone decreased [Recovering/Resolving]
  - Hyperthyroidism [Recovering/Resolving]
  - Muscular weakness [Recovering/Resolving]
  - Nasopharyngitis [Recovering/Resolving]
  - Pyrexia [Recovering/Resolving]
  - Thyroxine free increased [Recovering/Resolving]
